FAERS Safety Report 4656660-3 (Version None)
Quarter: 2005Q2

REPORT INFORMATION
  Report Type: 
  Country: None (occurrence: None)
  Receive Date: 20050506
  Receipt Date: 20050419
  Transmission Date: 20051028
  Serious: Yes (Other)
  Sender: FDA-Public Use
  Company Number: 2005-00864

PATIENT
  Age: 84 Year
  Sex: Female

DRUGS (1)
  1. VELCADE [Suspect]
     Indication: MULTIPLE MYELOMA

REACTIONS (4)
  - ANGIONEUROTIC OEDEMA [None]
  - DYSPNOEA [None]
  - OEDEMA PERIPHERAL [None]
  - THROAT TIGHTNESS [None]
